FAERS Safety Report 24408974 (Version 1)
Quarter: 2024Q4

REPORT INFORMATION
  Report Type: Spontaneous
  Country: US (occurrence: US)
  Receive Date: 20241007
  Receipt Date: 20241007
  Transmission Date: 20250114
  Serious: Yes (Other)
  Sender: ABBVIE
  Company Number: US-ABBVIE-5934980

PATIENT
  Age: 82 Year
  Sex: Female
  Weight: 61 kg

DRUGS (1)
  1. REFRESH CLASSIC [Suspect]
     Active Substance: POLYVINYL ALCOHOL\POVIDONE
     Indication: Dry eye
     Dosage: 1 DROP PER EYE?DRUG START DATE:7-8 YEARS AGO?PRESERVATIVE FREE
     Route: 047
     Dates: start: 2016, end: 20240919

REACTIONS (4)
  - Macular degeneration [Recovered/Resolved]
  - Corneal abrasion [Recovered/Resolved]
  - Corneal disorder [Unknown]
  - Product container issue [Unknown]

NARRATIVE: CASE EVENT DATE: 20240912
